FAERS Safety Report 8465710-8 (Version None)
Quarter: 2012Q2

REPORT INFORMATION
  Report Type: 
  Country: None (occurrence: None)
  Receive Date: 20120626
  Receipt Date: 20120618
  Transmission Date: 20120825
  Serious: Yes (Death)
  Sender: FDA-Public Use
  Company Number: US-PFIZER INC-2012148616

PATIENT
  Age: 56 Year
  Sex: Female

DRUGS (6)
  1. KEPPRA [Suspect]
     Dosage: UNK
  2. DULOXETIME HYDROCHLORIDE [Suspect]
     Dosage: UNK
  3. BUTALBITAL [Suspect]
     Dosage: UNK
  4. VERAPAMIL HCL [Suspect]
     Dosage: UNK
  5. METAXALONE [Suspect]
     Dosage: UNK
  6. ACETAMINOPHEN [Suspect]
     Dosage: UNK

REACTIONS (1)
  - COMPLETED SUICIDE [None]
